FAERS Safety Report 9821234 (Version 2)
Quarter: 2014Q1

REPORT INFORMATION
  Report Type: Spontaneous
  Country: US (occurrence: US)
  Receive Date: 20140116
  Receipt Date: 20140116
  Transmission Date: 20141002
  Serious: No
  Sender: FDA-Public Use
  Company Number: US-GILEAD-2010-0033355

PATIENT
  Sex: Male

DRUGS (17)
  1. LETAIRIS [Suspect]
     Indication: PULMONARY ARTERIAL HYPERTENSION
     Route: 048
     Dates: start: 20071116, end: 20090512
  2. ZETIA [Concomitant]
  3. LISINOPRIL [Concomitant]
  4. FUROSEMIDE [Concomitant]
  5. NITROGLYCERIN [Concomitant]
  6. ACTOS [Concomitant]
  7. HUMALOG [Concomitant]
  8. LANTUS [Concomitant]
  9. NEXIUM [Concomitant]
  10. METOCLOPRAMIDE [Concomitant]
  11. PHENERGAN [Concomitant]
  12. MARINOL [Concomitant]
  13. MIRALAX [Concomitant]
  14. MORPHINE [Concomitant]
  15. FLOMAX [Concomitant]
  16. CYMBALTA [Concomitant]
  17. FOSAMAX [Concomitant]

REACTIONS (1)
  - Drug ineffective [Unknown]
